FAERS Safety Report 5407492-X (Version None)
Quarter: 2007Q3

REPORT INFORMATION
  Report Type: 
  Country: None (occurrence: None)
  Receive Date: 20070803
  Receipt Date: 20070725
  Transmission Date: 20080115
  Serious: Yes (Hospitalization)
  Sender: FDA-Public Use
  Company Number: 2007SP014958

PATIENT
  Age: 60 Year
  Sex: Male

DRUGS (5)
  1. TEMOZOLOMIDE [Suspect]
     Indication: GLIOBLASTOMA
     Dosage: 175 ; PO
     Route: 048
     Dates: start: 20070625
  2. ZANTAC 150 [Concomitant]
  3. MEDROL [Concomitant]
  4. LASIX [Concomitant]
  5. BACTRIM DS [Concomitant]

REACTIONS (15)
  - ALANINE AMINOTRANSFERASE INCREASED [None]
  - ASPARTATE AMINOTRANSFERASE INCREASED [None]
  - BLOOD CHLORIDE DECREASED [None]
  - BLOOD LACTATE DEHYDROGENASE INCREASED [None]
  - BLOOD POTASSIUM INCREASED [None]
  - BLOOD UREA INCREASED [None]
  - DYSPNOEA [None]
  - GAMMA-GLUTAMYLTRANSFERASE INCREASED [None]
  - HAEMATOCRIT DECREASED [None]
  - LYMPHOCYTE PERCENTAGE DECREASED [None]
  - NEUTROPHIL PERCENTAGE INCREASED [None]
  - PLATELET COUNT DECREASED [None]
  - RED BLOOD CELL COUNT DECREASED [None]
  - TACHYCARDIA [None]
  - WHITE BLOOD CELL COUNT INCREASED [None]
